FAERS Safety Report 6867544-4 (Version None)
Quarter: 2010Q3

REPORT INFORMATION
  Report Type: 
  Country: None (occurrence: None)
  Receive Date: 20100722
  Receipt Date: 20100716
  Transmission Date: 20110219
  Serious: Yes (Other)
  Sender: FDA-Public Use
  Company Number: CH-BAYER-201032831GPV

PATIENT
  Age: 7 Month
  Sex: Male
  Weight: 2.54 kg

DRUGS (2)
  1. CIPROXIN [Suspect]
     Indication: URINARY TRACT INFECTION
     Dosage: TOTAL DAILY DOSE: 1000 MG
     Route: 064
     Dates: start: 20090810, end: 20090813
  2. FOLIC ACID [Concomitant]
     Route: 064

REACTIONS (2)
  - FOETAL GROWTH RESTRICTION [None]
  - NEONATAL RESPIRATORY DISTRESS SYNDROME [None]
